FAERS Safety Report 9060458 (Version 1)
Quarter: 2013Q1

REPORT INFORMATION
  Report Type: Spontaneous
  Country: US (occurrence: US)
  Receive Date: 20130212
  Receipt Date: 20130212
  Transmission Date: 20140127
  Serious: No
  Sender: FDA-Public Use
  Company Number: US-PFIZER INC-2013052640

PATIENT
  Age: 68 Year
  Sex: Male
  Weight: 61.22 kg

DRUGS (2)
  1. NORVASC [Suspect]
     Indication: PREHYPERTENSION
     Dosage: 5 MG (TWO 2.5MG TABLET), 1X/DAY
     Route: 048
     Dates: start: 201212
  2. LIPITOR [Suspect]
     Indication: BLOOD CHOLESTEROL INCREASED
     Dosage: 10 MG, 1X/DAY
     Route: 048

REACTIONS (1)
  - Dizziness [Unknown]
